FAERS Safety Report 4611606-9 (Version None)
Quarter: 2005Q1

REPORT INFORMATION
  Report Type: 
  Country: None (occurrence: None)
  Receive Date: 20050317
  Receipt Date: 20050309
  Transmission Date: 20050727
  Serious: Yes (Other)
  Sender: FDA-Public Use
  Company Number: AU-GLAXOSMITHKLINE-B0374928A

PATIENT
  Sex: Male

DRUGS (2)
  1. ZYBAN [Suspect]
     Indication: ILL-DEFINED DISORDER
     Dosage: 1TAB TWICE PER DAY
     Route: 065
     Dates: start: 20050224
  2. NO CONCURRENT MEDICATION [Concomitant]

REACTIONS (6)
  - DYSPNOEA [None]
  - EYE ROLLING [None]
  - HALLUCINATION [None]
  - INSOMNIA [None]
  - NAUSEA [None]
  - PALPITATIONS [None]
